FAERS Safety Report 20597390 (Version 1)
Quarter: 2022Q1

REPORT INFORMATION
  Report Type: Spontaneous
  Country: US (occurrence: None)
  Receive Date: 20220315
  Receipt Date: 20220315
  Transmission Date: 20220423
  Serious: Yes (Hospitalization)
  Sender: FDA-Public Use
  Company Number: None

PATIENT
  Age: 35 Year
  Sex: Male

DRUGS (1)
  1. AMBRISENTAN [Suspect]
     Active Substance: AMBRISENTAN
     Indication: Pulmonary arterial hypertension
     Dosage: TAKE 1 TABLET (10 MG TOTAL) BY MOUTH DAILY.
     Route: 048
     Dates: start: 20210114

REACTIONS (1)
  - Pulmonary arterial hypertension [None]

NARRATIVE: CASE EVENT DATE: 20220310
